FAERS Safety Report 6056902-6 (Version None)
Quarter: 2009Q1

REPORT INFORMATION
  Report Type: 
  Country: None (occurrence: None)
  Receive Date: 20090129
  Receipt Date: 20090122
  Transmission Date: 20090719
  Serious: Yes (Hospitalization)
  Sender: FDA-Public Use
  Company Number: B0555474A

PATIENT
  Sex: Male
  Weight: 50 kg

DRUGS (6)
  1. BUPROPION HCL [Suspect]
     Indication: SMOKING CESSATION THERAPY
     Dosage: 300MG PER DAY
     Route: 048
     Dates: start: 20080128, end: 20081028
  2. ETHAMBUTOL HYDROCHLORIDE [Concomitant]
     Indication: MYCOBACTERIAL INFECTION
     Dosage: 700MG PER DAY
     Route: 048
     Dates: start: 20080613
  3. RIFAMPICIN [Concomitant]
     Dosage: 450MG PER DAY
     Route: 048
     Dates: start: 20080613
  4. ASPIRIN [Concomitant]
  5. SYMBICORT [Concomitant]
     Indication: INFECTION
     Route: 055
     Dates: start: 20061030
  6. LANSOPRAZOLE [Concomitant]
     Dosage: 60MG PER DAY
     Dates: start: 20070820

REACTIONS (3)
  - EPILEPSY [None]
  - GRAND MAL CONVULSION [None]
  - SYNCOPE [None]
